FAERS Safety Report 23944287 (Version 5)
Quarter: 2025Q3

REPORT INFORMATION
  Report Type: Report from Study
  Country: CA (occurrence: CA)
  Receive Date: 20240606
  Receipt Date: 20250702
  Transmission Date: 20251021
  Serious: Yes (Hospitalization, Other)
  Sender: TAKEDA
  Company Number: CA-TAKEDA-2024TUS043166

PATIENT
  Sex: Female

DRUGS (4)
  1. VEDOLIZUMAB [Suspect]
     Active Substance: VEDOLIZUMAB
     Indication: Colitis ulcerative
  2. VEDOLIZUMAB [Suspect]
     Active Substance: VEDOLIZUMAB
  3. PREDNISONE [Concomitant]
     Active Substance: PREDNISONE
  4. MESALAMINE [Concomitant]
     Active Substance: MESALAMINE

REACTIONS (12)
  - Haematochezia [Unknown]
  - Malaise [Unknown]
  - Drug ineffective [Unknown]
  - Weight decreased [Unknown]
  - Poor venous access [Unknown]
  - Diarrhoea [Unknown]
  - Frequent bowel movements [Unknown]
  - Defaecation urgency [Unknown]
  - Abdominal pain [Unknown]
  - Dizziness [Unknown]
  - Arthralgia [Unknown]
  - Nausea [Unknown]
